FAERS Safety Report 8464398-X (Version None)
Quarter: 2012Q2

REPORT INFORMATION
  Report Type: 
  Country: None (occurrence: None)
  Receive Date: 20120626
  Receipt Date: 20120618
  Transmission Date: 20120825
  Serious: Yes (Hospitalization)
  Sender: FDA-Public Use
  Company Number: US-BIOGENIDEC-2012BI021800

PATIENT
  Sex: Female

DRUGS (3)
  1. AVONEX [Suspect]
     Route: 030
     Dates: start: 20070620, end: 20080830
  2. AVONEX [Suspect]
     Indication: MULTIPLE SCLEROSIS
     Route: 030
     Dates: start: 19970101, end: 20000120
  3. AVONEX [Suspect]
     Route: 030
     Dates: start: 20100909

REACTIONS (4)
  - FALL [None]
  - RIB FRACTURE [None]
  - FACIAL BONES FRACTURE [None]
  - JOINT DISLOCATION [None]
